FAERS Safety Report 20225943 (Version 1)
Quarter: 2021Q4

REPORT INFORMATION
  Report Type: Spontaneous
  Country: US (occurrence: US)
  Receive Date: 20211224
  Receipt Date: 20211224
  Transmission Date: 20220304
  Serious: No
  Sender: FDA-Public Use
  Company Number: US-ORGANON-O2112USA001726

PATIENT
  Age: 44 Year
  Sex: Female
  Weight: 58.957 kg

DRUGS (1)
  1. NEXPLANON [Suspect]
     Active Substance: ETONOGESTREL
     Indication: Heavy menstrual bleeding
     Dosage: 1 ROD FOR 3 YEARS (LEFT ARM)
     Route: 059
     Dates: start: 20210924

REACTIONS (2)
  - Product use in unapproved indication [Unknown]
  - Drug ineffective for unapproved indication [Unknown]

NARRATIVE: CASE EVENT DATE: 20210924
